FAERS Safety Report 5716169-2 (Version None)
Quarter: 2008Q2

REPORT INFORMATION
  Report Type: 
  Country: None (occurrence: None)
  Receive Date: 20080422
  Receipt Date: 20080410
  Transmission Date: 20081010
  Serious: Yes (Hospitalization)
  Sender: FDA-Public Use
  Company Number: GXKR2008CH03515

PATIENT
  Age: 55 Year
  Weight: 80 kg

DRUGS (6)
  1. RIMACTANE [Suspect]
     Dosage: 600 MG, QD, ORAL
     Route: 048
     Dates: start: 20080309
  2. IMMUCYST [Suspect]
     Indication: BLADDER CANCER
     Dosage: 81 MG, QW, URETHRAL
     Route: 066
     Dates: start: 20080101, end: 20080307
  3. ROCEPHIN [Suspect]
     Indication: URINARY TRACT INFECTION
     Dosage: 1 DF, QD, IV DRIP
     Route: 042
     Dates: start: 20080307, end: 20080310
  4. RIMIFON [Suspect]
     Dosage: 300 MG, QD, ORAL
     Route: 048
     Dates: start: 20080309
  5. SIMCORA (SIMVASTATIN) [Concomitant]
  6. PREDNISONE TAB [Concomitant]

REACTIONS (11)
  - BOVINE TUBERCULOSIS [None]
  - BRONCHIAL HYPERREACTIVITY [None]
  - CHOLESTASIS [None]
  - CONDITION AGGRAVATED [None]
  - CYTOLYTIC HEPATITIS [None]
  - GENERAL PHYSICAL HEALTH DETERIORATION [None]
  - LIVER INJURY [None]
  - LUNG NEOPLASM [None]
  - SEPSIS [None]
  - THROMBOCYTOPENIA [None]
  - URINARY TRACT INFECTION [None]
